FAERS Safety Report 11451853 (Version 1)
Quarter: 2015Q3

REPORT INFORMATION
  Report Type: Spontaneous
  Country: US (occurrence: None)
  Receive Date: 20150902
  Receipt Date: 20150902
  Transmission Date: 20151125
  Serious: No
  Sender: FDA-Public Use
  Company Number: None

PATIENT
  Age: 69 Year
  Sex: Male
  Weight: 70.31 kg

DRUGS (4)
  1. ONE-A-DAY MULTI VITAMINS [Concomitant]
  2. ATORVASTATIN [Suspect]
     Active Substance: ATORVASTATIN
     Indication: BLOOD CHOLESTEROL INCREASED
     Dosage: 1 PILL
     Route: 048
     Dates: start: 20141110, end: 20150701
  3. FISH OIL [Concomitant]
     Active Substance: FISH OIL
  4. ASPIRIN. [Concomitant]
     Active Substance: ASPIRIN

REACTIONS (3)
  - Decreased activity [None]
  - Vertigo [None]
  - Heart rate irregular [None]
